FAERS Safety Report 6759302-6 (Version None)
Quarter: 2010Q2

REPORT INFORMATION
  Report Type: 
  Country: None (occurrence: None)
  Receive Date: 20100607
  Receipt Date: 20100601
  Transmission Date: 20101027
  Serious: Yes (Other)
  Sender: FDA-Public Use
  Company Number: US-PFIZER INC-2010068896

PATIENT
  Sex: Female
  Weight: 43 kg

DRUGS (9)
  1. XALATAN [Suspect]
     Indication: GLAUCOMA
     Dosage: UNK
     Route: 047
  2. SYNTHROID [Concomitant]
     Indication: THYROID DISORDER
     Dosage: 150 MCG, UNK
     Route: 048
  3. TRIAMTERENE [Concomitant]
     Indication: BLOOD PRESSURE ABNORMAL
     Dosage: UNK
     Route: 048
  4. ALBUTEROL [Concomitant]
     Indication: CHRONIC OBSTRUCTIVE PULMONARY DISEASE
     Dosage: UNK
  5. ALBUTEROL [Concomitant]
     Indication: ASTHMA
  6. IPRATROPIUM [Concomitant]
     Indication: CHRONIC OBSTRUCTIVE PULMONARY DISEASE
     Dosage: UNK
  7. IPRATROPIUM [Concomitant]
     Indication: ASTHMA
  8. SPIRIVA [Concomitant]
     Indication: CHRONIC OBSTRUCTIVE PULMONARY DISEASE
     Dosage: UNK
  9. SPIRIVA [Concomitant]
     Indication: ASTHMA

REACTIONS (2)
  - DYSPNOEA [None]
  - GAIT DISTURBANCE [None]
